FAERS Safety Report 17035244 (Version 1)
Quarter: 2019Q4

REPORT INFORMATION
  Report Type: Report from Study
  Country: None (occurrence: US)
  Receive Date: 20191115
  Receipt Date: 20191115
  Transmission Date: 20200122
  Serious: Yes (Other)
  Sender: FDA-Public Use
  Company Number: US-ABBVIE-19K-163-2999140-00

PATIENT
  Age: 62 Year
  Sex: Female

DRUGS (1)
  1. HUMIRA [Suspect]
     Active Substance: ADALIMUMAB
     Indication: RHEUMATOID ARTHRITIS
     Route: 058

REACTIONS (7)
  - Knee arthroplasty [Unknown]
  - Arthropathy [Unknown]
  - Spinal cord compression [Unknown]
  - Spinal fusion surgery [Unknown]
  - Sciatica [Unknown]
  - Musculoskeletal disorder [Unknown]
  - Back disorder [Unknown]

NARRATIVE: CASE EVENT DATE: 20190711
